FAERS Safety Report 8914613 (Version 1)
Quarter: 2012Q4

REPORT INFORMATION
  Report Type: 
  Country: US (occurrence: US)
  Receive Date: 20121119
  Receipt Date: 20121119
  Transmission Date: 20130627
  Serious: No
  Sender: FDA-Public Use
  Company Number: US-ASTRAZENECA-2012SE84394

PATIENT
  Age: 62 Year
  Sex: Female
  Weight: 86.2 kg

DRUGS (2)
  1. SYMBICORT PMDI [Suspect]
     Dosage: 80/4.5 2 PUFFS TWO TIMES A DAY
     Route: 055
     Dates: start: 201203
  2. SYMBICORT PMDI [Suspect]
     Dosage: 80/4.5 2 PUFFS TWO TIMES A DAY
     Route: 055
     Dates: start: 201205

REACTIONS (4)
  - Chest pain [Unknown]
  - Crying [Recovered/Resolved]
  - Cough [Unknown]
  - Therapeutic response unexpected [Unknown]
